FAERS Safety Report 6622271-3 (Version None)
Quarter: 2010Q1

REPORT INFORMATION
  Report Type: 
  Country: None (occurrence: None)
  Receive Date: 20100305
  Receipt Date: 20100219
  Transmission Date: 20100710
  Serious: Yes (Death)
  Sender: FDA-Public Use
  Company Number: AE 2010-029

PATIENT
  Age: 57 Year
  Sex: Female

DRUGS (14)
  1. FAZACLO ODT [Suspect]
     Dosage: 300MG DAILY PO
     Route: 048
     Dates: start: 20091117, end: 20100121
  2. ATROVENT [Concomitant]
  3. ALBUTEROL [Concomitant]
  4. LORTAB [Concomitant]
  5. POTASSIUM [Concomitant]
  6. LEXAPRO [Concomitant]
  7. LITHIUM [Concomitant]
  8. ARICEPT [Concomitant]
  9. DEPAKOTE [Concomitant]
  10. NAMENDA [Concomitant]
  11. BABY ASPIRIN [Concomitant]
  12. ZINC [Concomitant]
  13. MIRALAX [Concomitant]
  14. TORSEMIDE [Concomitant]

REACTIONS (1)
  - CARDIO-RESPIRATORY ARREST [None]
